FAERS Safety Report 4596638-1 (Version None)
Quarter: 2005Q1

REPORT INFORMATION
  Report Type: 
  Country: None (occurrence: None)
  Receive Date: 20050228
  Receipt Date: 20040127
  Transmission Date: 20050727
  Serious: Yes (Life-Threatening, Hospitalization)
  Sender: FDA-Public Use
  Company Number: 7282

PATIENT
  Age: 78 Year
  Sex: Female

DRUGS (6)
  1. METHOTREXATE [Suspect]
     Indication: RHEUMATOID ARTHRITIS
     Dosage: 25 MG WEEKLY
     Route: 048
     Dates: end: 20021118
  2. FRUSEMIDE [Suspect]
     Indication: SWELLING
     Dosage: 80 MG
     Dates: end: 20021120
  3. POTASSIUM CHLORIDE [Suspect]
     Dosage: 600 MG
     Route: 048
     Dates: end: 20021120
  4. RANITIDINE [Suspect]
     Dosage: 300 MG
     Route: 048
     Dates: end: 20021120
  5. ACETYLSALICYLIC ACID SRT [Suspect]
     Dosage: 100 MG
     Route: 048
     Dates: end: 20021121
  6. DOXEPIN HCL [Suspect]
     Indication: DEPRESSION
     Dosage: 25 MG
     Route: 048
     Dates: end: 20021121

REACTIONS (5)
  - MELAENA [None]
  - MUCOSAL INFLAMMATION [None]
  - PANCYTOPENIA [None]
  - PLEURAL EFFUSION [None]
  - RESPIRATORY FAILURE [None]
